FAERS Safety Report 22012299 (Version 2)
Quarter: 2023Q1

REPORT INFORMATION
  Report Type: Spontaneous
  Country: US (occurrence: US)
  Receive Date: 20230220
  Receipt Date: 20230222
  Transmission Date: 20230417
  Serious: Yes (Other)
  Sender: FDA-Public Use
  Company Number: US-BAYER-2023P010817

PATIENT
  Age: 68 Year
  Sex: Female

DRUGS (12)
  1. ASPIRIN [Suspect]
     Active Substance: ASPIRIN
  2. HEPARIN [Interacting]
     Active Substance: HEPARIN SODIUM
  3. ENOXAPARIN [Interacting]
     Active Substance: ENOXAPARIN
  4. ATORVASTATIN [Concomitant]
     Active Substance: ATORVASTATIN
  5. DULOXETINE [Concomitant]
     Active Substance: DULOXETINE
  6. FOLIC ACID [Concomitant]
     Active Substance: FOLIC ACID
  7. FUROSEMIDE [Concomitant]
     Active Substance: FUROSEMIDE
  8. LEVOTHYROXINE [Concomitant]
     Active Substance: LEVOTHYROXINE
  9. MELOXICAM [Concomitant]
     Active Substance: MELOXICAM
  10. METHOTREXATE [Concomitant]
     Active Substance: METHOTREXATE
  11. METOPROLOL [Concomitant]
     Active Substance: METOPROLOL
  12. OMEPRAZOLE [Concomitant]
     Active Substance: OMEPRAZOLE

REACTIONS (2)
  - Subcutaneous haematoma [None]
  - Labelled drug-drug interaction medication error [None]
